FAERS Safety Report 15897851 (Version 2)
Quarter: 2019Q1

REPORT INFORMATION
  Report Type: Spontaneous
  Country: IN (occurrence: IN)
  Receive Date: 20190201
  Receipt Date: 20190318
  Transmission Date: 20190417
  Serious: Yes (Other)
  Sender: FDA-Public Use
  Company Number: IN-LUPIN PHARMACEUTICALS INC.-2019-00515

PATIENT
  Age: 38 Year
  Sex: Male

DRUGS (1)
  1. TOPIRAMATE TABLETS [Suspect]
     Active Substance: TOPIRAMATE
     Indication: HEADACHE
     Dosage: 25 MG, QD
     Route: 048

REACTIONS (6)
  - Angle closure glaucoma [Recovered/Resolved]
  - Chorioretinopathy [Recovered/Resolved]
  - Choroidal effusion [Recovered/Resolved]
  - Hypermetropia [Recovered/Resolved]
  - Myopia [Recovered/Resolved]
  - Macular detachment [Recovered/Resolved]
